FAERS Safety Report 7414441-1 (Version None)
Quarter: 2011Q2

REPORT INFORMATION
  Report Type: 
  Country: None (occurrence: None)
  Receive Date: 20110414
  Receipt Date: 20101022
  Transmission Date: 20111010
  Serious: Yes (Hospitalization)
  Sender: FDA-Public Use
  Company Number: US-BAYER-201032845NA

PATIENT
  Age: 48 Year
  Sex: Female
  Weight: 68.027 kg

DRUGS (5)
  1. OCELLA [Suspect]
     Indication: PRODUCT USED FOR UNKNOWN INDICATION
     Route: 048
     Dates: start: 20090114, end: 20090422
  2. TYLENOL W/ CODEINE NO. 3 [Concomitant]
  3. ALBUTEROL [Concomitant]
  4. YAZ [Suspect]
     Indication: PRODUCT USED FOR UNKNOWN INDICATION
     Route: 048
     Dates: start: 20071215, end: 20091201
  5. ASCORBIC ACID [Concomitant]

REACTIONS (1)
  - GALLBLADDER DISORDER [None]
